FAERS Safety Report 14790860 (Version 1)
Quarter: 2018Q2

REPORT INFORMATION
  Report Type: Spontaneous
  Country: DE (occurrence: DE)
  Receive Date: 20180423
  Receipt Date: 20180423
  Transmission Date: 20180711
  Serious: Yes (Hospitalization)
  Sender: FDA-Public Use
  Company Number: DE-JNJFOC-20180423838

PATIENT
  Age: 80 Year
  Sex: Male
  Weight: 76 kg

DRUGS (5)
  1. XARELTO [Suspect]
     Active Substance: RIVAROXABAN
     Indication: PRODUCT USED FOR UNKNOWN INDICATION
     Route: 048
  2. PANTOPRAZOLE [Concomitant]
     Active Substance: PANTOPRAZOLE
     Route: 048
  3. ONDANSETRON [Concomitant]
     Active Substance: ONDANSETRON
     Route: 048
  4. TORASEMID [Concomitant]
     Active Substance: TORSEMIDE
     Route: 048
  5. FENTANYL. [Concomitant]
     Active Substance: FENTANYL
     Route: 062

REACTIONS (6)
  - General physical health deterioration [Unknown]
  - Gastrointestinal haemorrhage [Unknown]
  - Haematochezia [Unknown]
  - Anaemia [Unknown]
  - Atrial fibrillation [Unknown]
  - Asthenia [Unknown]
